FAERS Safety Report 14827695 (Version 6)
Quarter: 2018Q3

REPORT INFORMATION
  Report Type: Spontaneous
  Country: US (occurrence: US)
  Receive Date: 20180430
  Receipt Date: 20180928
  Transmission Date: 20181010
  Serious: Yes (Other)
  Sender: FDA-Public Use
  Company Number: PHEH2018US016390

PATIENT
  Age: 31 Year
  Sex: Female
  Weight: 60.32 kg

DRUGS (1)
  1. ZOFRAN ODT [Suspect]
     Active Substance: ONDANSETRON HYDROCHLORIDE
     Indication: PRODUCT USED FOR UNKNOWN INDICATION
     Dosage: 4 MG, BID, PRN
     Route: 048

REACTIONS (6)
  - Maternal exposure during pregnancy [Unknown]
  - Amniotic cavity infection [Unknown]
  - Product use issue [Unknown]
  - Injury [Unknown]
  - Asthma [Unknown]
  - Anxiety [Unknown]

NARRATIVE: CASE EVENT DATE: 20050614
